FAERS Safety Report 8928975 (Version 1)
Quarter: 2012Q4

REPORT INFORMATION
  Report Type: 
  Country: CA (occurrence: CA)
  Receive Date: 20121127
  Receipt Date: 20121127
  Transmission Date: 20130627
  Serious: Yes (Disabling)
  Sender: FDA-Public Use
  Company Number: CA-009507513-1211CAN010807

PATIENT
  Age: 58 Year
  Sex: Female

DRUGS (3)
  1. SAPHRIS [Suspect]
     Indication: BIPOLAR DISORDER
     Dosage: 5 mg, qd
     Route: 048
     Dates: start: 20121018, end: 20121024
  2. LAMICTAL [Concomitant]
     Indication: BIPOLAR DISORDER
     Dosage: 150 mg, bid
     Route: 048
  3. WELLBUTRIN XL [Concomitant]
     Indication: PRODUCT USED FOR UNKNOWN INDICATION
     Dosage: 300 mg, qd
     Route: 048

REACTIONS (6)
  - Myoclonus [Recovering/Resolving]
  - Gait disturbance [Unknown]
  - Dysarthria [Unknown]
  - Insomnia [Unknown]
  - Impaired work ability [Unknown]
  - Underdose [Unknown]
